FAERS Safety Report 7227420-4 (Version None)
Quarter: 2011Q1

REPORT INFORMATION
  Report Type: 
  Country: None (occurrence: None)
  Receive Date: 20110114
  Receipt Date: 20110113
  Transmission Date: 20110831
  Serious: Yes (Death)
  Sender: FDA-Public Use
  Company Number: GR-PFIZER INC-2011008384

PATIENT
  Age: 73 Year
  Sex: Female

DRUGS (3)
  1. TIGECYCLINE [Suspect]
     Dosage: 50 MG, 1X/DAY
     Route: 042
     Dates: start: 20090526
  2. PIPERACILLIN AND TAZOBACTAM [Suspect]
     Dosage: 2.25 G, 3X/DAY
     Route: 042
     Dates: start: 20090520, end: 20090524
  3. PIPERACILLIN AND TAZOBACTAM [Suspect]
     Dosage: 4.5 MG, 3X/DAY
     Route: 042
     Dates: start: 20090525, end: 20090525

REACTIONS (1)
  - CHOLECYSTITIS ACUTE [None]
